FAERS Safety Report 26211628 (Version 1)
Quarter: 2025Q4

REPORT INFORMATION
  Report Type: Other
  Country: GB (occurrence: GB)
  Receive Date: 20251230
  Receipt Date: 20251230
  Transmission Date: 20260118
  Serious: Yes (Congenital Anomaly, Other)
  Sender: LUPIN
  Company Number: GB-ASTRAZENECA-202512GLO004316GB

PATIENT
  Age: 37 Week

DRUGS (16)
  1. QUETIAPINE [Suspect]
     Active Substance: QUETIAPINE
     Indication: Product used for unknown indication
     Dosage: 50 MILLIGRAM, QD
     Dates: start: 20150120
  2. BECLOMETHASONE DIPROPIONATE\BORNEOL\CAMPHOR (SYNTHETIC)\MENTHOL\METHYL [Suspect]
     Active Substance: BECLOMETHASONE DIPROPIONATE\BORNEOL\CAMPHOR (SYNTHETIC)\MENTHOL\METHYL SALICYLATE\THYMOL
     Indication: Product used for unknown indication
     Dosage: 200 MICROGRAM, BID
     Dates: start: 20250528
  3. OMEPRAZOLE [Suspect]
     Active Substance: OMEPRAZOLE
     Indication: Product used for unknown indication
     Dosage: 40 MILLIGRAM, QD
     Dates: start: 20240731
  4. BECLOMETHASONE DIPROPIONATE\BORNEOL\CAMPHOR (SYNTHETIC)\MENTHOL\METHYL [Suspect]
     Active Substance: BECLOMETHASONE DIPROPIONATE\BORNEOL\CAMPHOR (SYNTHETIC)\MENTHOL\METHYL SALICYLATE\THYMOL
     Indication: Product used for unknown indication
     Dosage: 200 MICROGRAM, BID
     Dates: start: 20240528
  5. DULOXETINE [Suspect]
     Active Substance: DULOXETINE
     Indication: Product used for unknown indication
     Dosage: UNK
  6. MIRTAZAPINE [Suspect]
     Active Substance: MIRTAZAPINE
     Indication: Product used for unknown indication
     Dosage: 45 MILLIGRAM
  7. ENOXAPARIN SODIUM [Suspect]
     Active Substance: ENOXAPARIN SODIUM
     Indication: Product used for unknown indication
     Dosage: 40 MILLIGRAM
  8. LACTULOSE [Suspect]
     Active Substance: LACTULOSE
     Indication: Product used for unknown indication
     Dosage: 5 MILLILITER
  9. POLYETHYLENE GLYCOLS [Suspect]
     Active Substance: POLYETHYLENE GLYCOLS
     Indication: Product used for unknown indication
     Dosage: 1-2 SACHETS, QD
     Dates: start: 20250409
  10. DISODIUM HYDROGEN CITRATE\SODIUM LAURYL SULFOACETATE\SORBIC ACID [Suspect]
     Active Substance: DISODIUM HYDROGEN CITRATE\SODIUM LAURYL SULFOACETATE\SORBIC ACID
     Indication: Product used for unknown indication
     Dosage: 1, PRN
  11. SENNA [Suspect]
     Active Substance: SENNOSIDES
     Indication: Product used for unknown indication
     Dosage: 150 MILLIGRAM
  12. ALBUTEROL [Suspect]
     Active Substance: ALBUTEROL
     Indication: Product used for unknown indication
     Dosage: 2 PUFFS, PRN
  13. AMOXICILLIN [Suspect]
     Active Substance: AMOXICILLIN
     Indication: Product used for unknown indication
     Dosage: 1 DOSAGE FORM, TID, FOR 1 WEEK
     Dates: start: 20250925, end: 20250925
  14. CLOTRIMAZOLE [Suspect]
     Active Substance: CLOTRIMAZOLE
     Indication: Product used for unknown indication
     Dosage: 200 MILLIGRAM, AT NIGHT FOR 6 NIGHT
     Dates: start: 20250804, end: 20250811
  15. CHOLECALCIFEROL [Suspect]
     Active Substance: CHOLECALCIFEROL
     Indication: Product used for unknown indication
     Dosage: 400 UNITS, QD
     Dates: start: 20250320
  16. FOLIC ACID [Concomitant]
     Active Substance: FOLIC ACID
     Indication: Product used for unknown indication
     Dosage: 400 MICROGRAM
     Dates: start: 20250804, end: 20250811

REACTIONS (2)
  - Cleft palate [Not Recovered/Not Resolved]
  - Foetal exposure during pregnancy [Recovered/Resolved]

NARRATIVE: CASE EVENT DATE: 20251101
